FAERS Safety Report 11312686 (Version 1)
Quarter: 2015Q3

REPORT INFORMATION
  Report Type: Spontaneous
  Country: US (occurrence: US)
  Receive Date: 20150727
  Receipt Date: 20150727
  Transmission Date: 20151125
  Serious: No
  Sender: FDA-Public Use
  Company Number: US-ABBVIE-15P-163-1329472-00

PATIENT
  Age: 55 Year
  Sex: Female
  Weight: 70.37 kg

DRUGS (6)
  1. SYNTHROID [Suspect]
     Active Substance: LEVOTHYROXINE SODIUM
     Indication: PRODUCT USED FOR UNKNOWN INDICATION
     Route: 065
  2. TIROSINT [Suspect]
     Active Substance: LEVOTHYROXINE SODIUM
     Indication: AUTOIMMUNE THYROIDITIS
     Route: 048
     Dates: start: 201406
  3. CYTOMEL [Concomitant]
     Active Substance: LIOTHYRONINE SODIUM
     Indication: PRODUCT USED FOR UNKNOWN INDICATION
  4. SYNTHROID [Suspect]
     Active Substance: LEVOTHYROXINE SODIUM
     Indication: PRODUCT USED FOR UNKNOWN INDICATION
     Route: 065
  5. TIROSINT [Suspect]
     Active Substance: LEVOTHYROXINE SODIUM
     Route: 048
     Dates: start: 201405
  6. TIROSINT [Suspect]
     Active Substance: LEVOTHYROXINE SODIUM
     Dosage: 25 MCG QAM, 13MCG QPM
     Route: 048

REACTIONS (7)
  - Pharyngeal oedema [Unknown]
  - Muscular weakness [Unknown]
  - Pruritus [Unknown]
  - Pharyngitis streptococcal [Unknown]
  - Malabsorption [Unknown]
  - Alopecia [Unknown]
  - Flushing [Unknown]

NARRATIVE: CASE EVENT DATE: 201404
